FAERS Safety Report 9375284 (Version 2)
Quarter: 2013Q3

REPORT INFORMATION
  Report Type: Report from Study
  Country: NZ (occurrence: NZ)
  Receive Date: 20130628
  Receipt Date: 20130701
  Transmission Date: 20140515
  Serious: Yes (Death, Other)
  Sender: FDA-Public Use
  Company Number: NZ-PFIZER INC-2012270943

PATIENT
  Sex: Female

DRUGS (1)
  1. CHAMPIX [Suspect]
     Dosage: UNK

REACTIONS (2)
  - Completed suicide [Fatal]
  - Basal cell carcinoma [Unknown]
